FAERS Safety Report 7867782-8 (Version None)
Quarter: 2011Q4

REPORT INFORMATION
  Report Type: 
  Country: None (occurrence: None)
  Receive Date: 20111028
  Receipt Date: 20100324
  Transmission Date: 20120403
  Serious: Yes (Other)
  Sender: FDA-Public Use
  Company Number: US-BAYER-201017350NA

PATIENT
  Sex: Female

DRUGS (2)
  1. AVELOX [Suspect]
     Indication: PRODUCT USED FOR UNKNOWN INDICATION
  2. BENADRYL [Concomitant]
     Indication: HYPERSENSITIVITY

REACTIONS (4)
  - PRURITUS [None]
  - RASH [None]
  - HYPERSENSITIVITY [None]
  - PHARYNGEAL OEDEMA [None]
